FAERS Safety Report 5006973-0 (Version None)
Quarter: 2006Q2

REPORT INFORMATION
  Report Type: 
  Country: None (occurrence: None)
  Receive Date: 20060519
  Receipt Date: 20060511
  Transmission Date: 20061013
  Serious: Yes (Other)
  Sender: FDA-Public Use
  Company Number: PHEH2006US06229

PATIENT
  Age: 61 Year
  Sex: Male

DRUGS (8)
  1. ENABLEX [Suspect]
     Indication: URINARY INCONTINENCE
     Dosage: 15 MG, QD
     Dates: start: 20060510, end: 20060511
  2. PROVIGIL [Concomitant]
  3. LEXAPRO [Concomitant]
     Indication: DEPRESSION
  4. LAMICTAL [Concomitant]
     Indication: CONVULSION
  5. WELLBUTRIN [Concomitant]
     Indication: DEPRESSION
  6. ORINASE [Concomitant]
     Indication: DIABETES MELLITUS
  7. DETROL [Concomitant]
  8. MODURETIC 5-50 [Concomitant]

REACTIONS (3)
  - ARTHRALGIA [None]
  - BLOOD GLUCOSE DECREASED [None]
  - TREMOR [None]
